FAERS Safety Report 4898457-5 (Version None)
Quarter: 2006Q1

REPORT INFORMATION
  Report Type: 
  Country: None (occurrence: None)
  Receive Date: 20060127
  Receipt Date: 20060121
  Transmission Date: 20060701
  Serious: Yes (Death)
  Sender: FDA-Public Use
  Company Number: 2006003122

PATIENT
  Age: 61 Year
  Sex: Male

DRUGS (5)
  1. GEODON [Suspect]
     Indication: AGITATION
     Dosage: (20 MG/KG,), INTRAMUSCULAR
     Route: 030
     Dates: end: 20051222
  2. GEODON [Suspect]
     Indication: MOANING
     Dosage: (20 MG/KG,), INTRAMUSCULAR
     Route: 030
     Dates: end: 20051222
  3. GEODON [Suspect]
     Indication: SCHIZOAFFECTIVE DISORDER
     Dosage: (20 MG/KG,), INTRAMUSCULAR
     Route: 030
     Dates: end: 20051222
  4. THORAZINE [Concomitant]
  5. LITHIUM CARBONATE [Concomitant]

REACTIONS (3)
  - AGITATION [None]
  - CARDIO-RESPIRATORY ARREST [None]
  - MOANING [None]
